FAERS Safety Report 24761051 (Version 1)
Quarter: 2024Q4

REPORT INFORMATION
  Report Type: Spontaneous
  Country: FR (occurrence: FR)
  Receive Date: 20241220
  Receipt Date: 20241220
  Transmission Date: 20250115
  Serious: Yes (Hospitalization, Other)
  Sender: MYLAN
  Company Number: None

PATIENT
  Age: 48 Year
  Sex: Female
  Weight: 54 kg

DRUGS (2)
  1. ACETAMINOPHEN [Suspect]
     Active Substance: ACETAMINOPHEN
     Indication: Product used for unknown indication
     Dosage: 48 GRAM, 1 TOTAL
     Route: 048
     Dates: start: 20241010, end: 20241010
  2. PRAZEPAM [Suspect]
     Active Substance: PRAZEPAM
     Indication: Product used for unknown indication
     Dosage: UNK (NOT SPECIFIED)
     Route: 048
     Dates: start: 20241010, end: 20241010

REACTIONS (4)
  - Hepatic cytolysis [Recovered/Resolved]
  - Drug level increased [Recovered/Resolved]
  - Somnolence [Recovered/Resolved]
  - Poisoning deliberate [Unknown]

NARRATIVE: CASE EVENT DATE: 20241010
